FAERS Safety Report 21658896 (Version 8)
Quarter: 2023Q1

REPORT INFORMATION
  Report Type: Report from Study
  Country: GB (occurrence: None)
  Receive Date: 20221129
  Receipt Date: 20230221
  Transmission Date: 20230418
  Serious: Yes (Hospitalization)
  Sender: FDA-Public Use
  Company Number: GB-Eisai Medical Research-EC-2022-128473

PATIENT
  Age: 74 Year
  Sex: Female
  Weight: 63 kg

DRUGS (22)
  1. LENVATINIB [Suspect]
     Active Substance: LENVATINIB
     Indication: Renal cell carcinoma
     Route: 048
     Dates: start: 20220825, end: 20220825
  2. FAVEZELIMAB [Suspect]
     Active Substance: FAVEZELIMAB
     Indication: Renal cell carcinoma
     Dosage: MK 4280 (800 MG MK-4280 PEMBROLIZUMAB (MK-3475) 200MG (MK-4280A)
     Route: 042
     Dates: start: 20220825, end: 20220825
  3. GADOLINIUM [Suspect]
     Active Substance: GADOLINIUM
     Indication: Magnetic resonance imaging head
     Route: 042
     Dates: start: 20221114, end: 20221114
  4. INDAPAMIDE [Concomitant]
     Active Substance: INDAPAMIDE
     Dates: start: 20221102, end: 20221109
  5. SOLIFENACIN [Concomitant]
     Active Substance: SOLIFENACIN
     Dates: start: 201301
  6. OMEPRAZOLE [Concomitant]
     Active Substance: OMEPRAZOLE
     Dates: start: 201312
  7. VITAMIN D NOS [Concomitant]
     Active Substance: VITAMIN D NOS
     Dates: start: 201301
  8. MAGNESIUM [Concomitant]
     Active Substance: MAGNESIUM
     Dates: start: 20220824
  9. PANTOPRAZOLE [Concomitant]
     Active Substance: PANTOPRAZOLE
     Dates: start: 20220913, end: 20221208
  10. THIAMINE [Concomitant]
     Active Substance: THIAMINE
     Dates: start: 20220909
  11. VITAMIN B [Concomitant]
     Active Substance: VITAMIN B
     Dates: start: 20220909
  12. POTASSIUM CHLORIDE [Concomitant]
     Active Substance: POTASSIUM CHLORIDE
     Dates: start: 20220910
  13. SODIUM PHOSPHATE [Concomitant]
     Active Substance: SODIUM PHOSPHATE
     Dates: start: 20220910
  14. ZINC [Concomitant]
     Active Substance: ZINC
     Dates: start: 20220909
  15. LEVETIRACETAM [Concomitant]
     Active Substance: LEVETIRACETAM
     Dates: start: 20220912, end: 20221117
  16. MOVICOL [Concomitant]
     Active Substance: POLYETHYLENE GLYCOL 3350\POTASSIUM CHLORIDE\SODIUM BICARBONATE\SODIUM CHLORIDE
     Dates: start: 20220911
  17. MORPHINE [Concomitant]
     Active Substance: MORPHINE
     Dates: start: 20220916
  18. ACETAMINOPHEN [Concomitant]
     Active Substance: ACETAMINOPHEN
     Dates: start: 20220916
  19. ZOPICLONE [Concomitant]
     Active Substance: ZOPICLONE
     Dates: start: 20220914
  20. PREDNISOLONE [Concomitant]
     Active Substance: PREDNISOLONE
     Dates: start: 20221028, end: 20221219
  21. SULFAMETHOXAZOLE\TRIMETHOPRIM [Concomitant]
     Active Substance: SULFAMETHOXAZOLE\TRIMETHOPRIM
     Dates: start: 20221019, end: 20221117
  22. PEMBROLIZUMAB [Suspect]
     Active Substance: PEMBROLIZUMAB
     Dates: start: 20220825

REACTIONS (2)
  - Acute kidney injury [Not Recovered/Not Resolved]
  - Contrast media reaction [Recovered/Resolved]

NARRATIVE: CASE EVENT DATE: 20221114
